FAERS Safety Report 7241398-9 (Version None)
Quarter: 2011Q1

REPORT INFORMATION
  Report Type: 
  Country: None (occurrence: None)
  Receive Date: 20110124
  Receipt Date: 20110117
  Transmission Date: 20110831
  Serious: Yes (Death, Other)
  Sender: FDA-Public Use
  Company Number: SG-ROCHE-753750

PATIENT
  Age: 20 Year
  Sex: Female

DRUGS (10)
  1. METHOTREXATE [Suspect]
     Route: 065
  2. ETOPOSIDE [Suspect]
     Route: 065
  3. CYCLOPHOSPHAMIDE [Suspect]
     Route: 065
  4. MYCOPHENOLATE MOFETIL [Suspect]
     Indication: LUPUS NEPHRITIS
     Dosage: DRUG WAS DISCONTINUED.
     Route: 065
  5. RITUXIMAB [Suspect]
     Route: 065
  6. CYTARABINE [Suspect]
     Route: 065
  7. THIOTEPA [Suspect]
     Route: 065
  8. BUSULFAN [Suspect]
     Route: 065
  9. VINCRISTINE [Suspect]
     Route: 065
  10. PROCARBAZINE [Suspect]
     Route: 065

REACTIONS (7)
  - BACTERIAL SEPSIS [None]
  - SYSTEMIC CANDIDA [None]
  - STEVENS-JOHNSON SYNDROME [None]
  - CENTRAL NERVOUS SYSTEM LYMPHOMA [None]
  - FEBRILE NEUTROPENIA [None]
  - POSTERIOR REVERSIBLE ENCEPHALOPATHY SYNDROME [None]
  - BK VIRUS INFECTION [None]
